FAERS Safety Report 23759462 (Version 1)
Quarter: 2024Q2

REPORT INFORMATION
  Report Type: Spontaneous
  Country: US (occurrence: None)
  Receive Date: 20240418
  Receipt Date: 20240418
  Transmission Date: 20240716
  Serious: No
  Sender: FDA-Public Use
  Company Number: US-ROCHE-3419777

PATIENT
  Sex: Female

DRUGS (1)
  1. ESBRIET [Suspect]
     Active Substance: PIRFENIDONE
     Indication: Idiopathic pulmonary fibrosis
     Route: 048
     Dates: start: 202209

REACTIONS (9)
  - Decreased appetite [Unknown]
  - Tremor [Unknown]
  - Weight increased [Unknown]
  - Skin discolouration [Unknown]
  - Fatigue [Unknown]
  - Skin ulcer [Unknown]
  - Wound [Unknown]
  - Rash [Unknown]
  - Haemorrhage [Unknown]
